FAERS Safety Report 8483987-X (Version None)
Quarter: 2012Q3

REPORT INFORMATION
  Report Type: 
  Country: None (occurrence: None)
  Receive Date: 20120703
  Receipt Date: 20120627
  Transmission Date: 20120928
  Serious: No
  Sender: FDA-Public Use
  Company Number: US-PFIZER INC-2012155494

PATIENT
  Sex: Female
  Weight: 88.4 kg

DRUGS (5)
  1. SOMAVERT [Suspect]
     Indication: INSULIN-LIKE GROWTH FACTOR INCREASED
     Dosage: UNK
     Route: 030
     Dates: start: 20120101, end: 20120101
  2. HYDROCHLOROTHIAZIDE [Concomitant]
     Indication: HYPERTENSION
     Dosage: 25 MG, 1X/DAY
  3. SOMAVERT [Suspect]
     Indication: ACROMEGALY
     Dosage: UNK
     Route: 030
     Dates: start: 20110101, end: 20120101
  4. LOSARTAN [Concomitant]
     Indication: HYPERTENSION
     Dosage: 50 MG, UNK
  5. SOMATULINE DEPOT [Concomitant]
     Indication: ACROMEGALY
     Dosage: 120 MG, WEEKLY

REACTIONS (2)
  - LIVER FUNCTION TEST ABNORMAL [None]
  - INSULIN-LIKE GROWTH FACTOR INCREASED [None]
